FAERS Safety Report 17323045 (Version 1)
Quarter: 2020Q1

REPORT INFORMATION
  Report Type: Spontaneous
  Country: US (occurrence: US)
  Receive Date: 20200107
  Receipt Date: 20200107
  Transmission Date: 20200409
  Serious: Yes (Death, Hospitalization)
  Sender: FDA-Public Use
  Company Number: None

PATIENT
  Age: 68 Year
  Sex: Female
  Weight: 115.6 kg

DRUGS (3)
  1. CISPLATIN. [Suspect]
     Active Substance: CISPLATIN
     Dates: end: 20191202
  2. PACLITAXEL PROTEIN-BOUND PARTICLES (ALBUMIN-BOUND) [Suspect]
     Active Substance: PACLITAXEL
     Dates: end: 20191202
  3. GEMCITABINE HYDROCHLORIDE. [Suspect]
     Active Substance: GEMCITABINE HYDROCHLORIDE
     Dates: end: 20191202

REACTIONS (15)
  - Deep vein thrombosis [None]
  - Pulmonary embolism [None]
  - Gastrointestinal haemorrhage [None]
  - Transaminases increased [None]
  - Hypoalbuminaemia [None]
  - Clostridium difficile colitis [None]
  - Pancytopenia [None]
  - Abdominal pain [None]
  - Cold sweat [None]
  - Electrolyte imbalance [None]
  - Generalised oedema [None]
  - Leukopenia [None]
  - Inappropriate antidiuretic hormone secretion [None]
  - Acute kidney injury [None]
  - Chronic kidney disease [None]

NARRATIVE: CASE EVENT DATE: 20191204
